FAERS Safety Report 23399305 (Version 2)
Quarter: 2024Q1

REPORT INFORMATION
  Report Type: Report from Study
  Country: US (occurrence: US)
  Receive Date: 20240113
  Receipt Date: 20240118
  Transmission Date: 20240409
  Serious: Yes (Other)
  Sender: FDA-Public Use
  Company Number: US-ABBVIE-5584225

PATIENT
  Age: 65 Year
  Sex: Female
  Weight: 74 kg

DRUGS (6)
  1. HUMIRA [Suspect]
     Active Substance: ADALIMUMAB
     Indication: Rheumatoid arthritis
     Dosage: FORM STRENGTH: 40 MILLIGRAM
     Route: 058
     Dates: start: 20230801
  2. METHOTREXATE [Concomitant]
     Active Substance: METHOTREXATE
     Indication: Rheumatoid arthritis
  3. PROLENSA [Concomitant]
     Active Substance: BROMFENAC SODIUM
     Indication: Eye disorder
  4. TIMOLOL MALEATE [Concomitant]
     Active Substance: TIMOLOL MALEATE
     Indication: Eye disorder
  5. PREDNISOLONE [Concomitant]
     Active Substance: PREDNISOLONE
     Indication: Eye disorder
  6. BRIMONIDINE [Concomitant]
     Active Substance: BRIMONIDINE TARTRATE
     Indication: Eye disorder

REACTIONS (7)
  - Angle closure glaucoma [Recovered/Resolved]
  - Respiratory tract infection [Not Recovered/Not Resolved]
  - Cataract [Recovered/Resolved]
  - Bacterial infection [Not Recovered/Not Resolved]
  - Exposure to communicable disease [Not Recovered/Not Resolved]
  - Pyrexia [Recovered/Resolved]
  - Chylothorax [Unknown]

NARRATIVE: CASE EVENT DATE: 20231101
